FAERS Safety Report 24064415 (Version 2)
Quarter: 2024Q3

REPORT INFORMATION
  Report Type: Spontaneous
  Country: IT (occurrence: IT)
  Receive Date: 20240709
  Receipt Date: 20240726
  Transmission Date: 20241017
  Serious: Yes (Hospitalization)
  Sender: TEVA
  Company Number: IT-TEVA-VS-3215305

PATIENT
  Age: 64 Year
  Sex: Female

DRUGS (8)
  1. PREDNISONE [Suspect]
     Active Substance: PREDNISONE
     Indication: Chronic rhinosinusitis with nasal polyps
     Dosage: RECEIVED FOR 7 10 DAYS
     Route: 048
  2. PREDNISONE [Suspect]
     Active Substance: PREDNISONE
     Indication: Chronic rhinosinusitis with nasal polyps
     Route: 048
  3. METHYLPREDNISOLONE [Suspect]
     Active Substance: METHYLPREDNISOLONE
     Indication: Eosinophilia
     Dosage: RECEIVED FOR 3 DAYS
     Route: 042
  4. BECLOMETHASONE\FORMOTEROL [Suspect]
     Active Substance: BECLOMETHASONE\FORMOTEROL
     Indication: Chronic rhinosinusitis with nasal polyps
     Dosage: RECEIVED 800/24  G/DAY
     Route: 055
  5. DUPILUMAB [Suspect]
     Active Substance: DUPILUMAB
     Indication: Chronic rhinosinusitis with nasal polyps
     Dosage: RECEIVED 600MG, WHICH WAS FOLLOWED BY 300MG SC EVERY 2 WEEKS
     Route: 058
     Dates: start: 20230220
  6. MONTELUKAST [Concomitant]
     Active Substance: MONTELUKAST SODIUM
     Indication: Chronic rhinosinusitis with nasal polyps
     Route: 065
  7. TIOTROPIUM [Suspect]
     Active Substance: TIOTROPIUM
     Indication: Chronic rhinosinusitis with nasal polyps
     Route: 065
  8. ALBUTEROL [Concomitant]
     Active Substance: ALBUTEROL
     Indication: Chronic rhinosinusitis with nasal polyps
     Route: 055

REACTIONS (3)
  - Drug ineffective [Unknown]
  - Cardiac ventricular thrombosis [Recovering/Resolving]
  - Eosinophilia [Recovered/Resolved]
